FAERS Safety Report 15808243 (Version 1)
Quarter: 2019Q1

REPORT INFORMATION
  Report Type: Spontaneous
  Country: US (occurrence: US)
  Receive Date: 20190107
  Receipt Date: 20190107
  Transmission Date: 20190417
  Serious: No
  Sender: FDA-Public Use
  Company Number: None

PATIENT

DRUGS (1)
  1. ZOLOFT [Suspect]
     Active Substance: SERTRALINE HYDROCHLORIDE

REACTIONS (7)
  - Palpitations [None]
  - Fear [None]
  - Nausea [None]
  - Drug dispensed to wrong patient [None]
  - Wrong product administered [None]
  - Syncope [None]
  - Heart rate increased [None]

NARRATIVE: CASE EVENT DATE: 2018
